FAERS Safety Report 5947075-6 (Version None)
Quarter: 2008Q4

REPORT INFORMATION
  Report Type: 
  Country: None (occurrence: None)
  Receive Date: 20081106
  Receipt Date: 20081028
  Transmission Date: 20090506
  Serious: Yes (Death)
  Sender: FDA-Public Use
  Company Number: 2008BI029108

PATIENT
  Age: 70 Year
  Sex: Male

DRUGS (2)
  1. TYSABRI [Suspect]
     Indication: MULTIPLE SCLEROSIS
     Dosage: 300 MG;QM;IV
     Route: 042
     Dates: start: 20070420, end: 20080827
  2. AVONEX [Concomitant]

REACTIONS (5)
  - MALNUTRITION [None]
  - METASTATIC NEOPLASM [None]
  - POST GASTRIC SURGERY SYNDROME [None]
  - PSEUDOMONAS INFECTION [None]
  - SEPTIC SHOCK [None]
